FAERS Safety Report 12640835 (Version 4)
Quarter: 2016Q4

REPORT INFORMATION
  Report Type: Report from Study
  Country: DE (occurrence: DE)
  Receive Date: 20160810
  Receipt Date: 20161004
  Transmission Date: 20170207
  Serious: Yes (Hospitalization)
  Sender: FDA-Public Use
  Company Number: DE-SA-2016SA123367

PATIENT
  Age: 36 Year
  Sex: Female
  Weight: 50 kg

DRUGS (4)
  1. DEKRISTOL [Concomitant]
     Active Substance: CHOLECALCIFEROL
     Indication: VITAMIN D DEFICIENCY
     Route: 048
     Dates: start: 20160518
  2. MODAFINIL. [Concomitant]
     Active Substance: MODAFINIL
     Indication: FATIGUE
     Route: 048
     Dates: start: 20160518
  3. LEMTRADA [Suspect]
     Active Substance: ALEMTUZUMAB
     Indication: MULTIPLE SCLEROSIS
     Route: 041
     Dates: start: 20160627, end: 20160701
  4. SATIVEX [Concomitant]
     Active Substance: NABIXIMOLS
     Indication: MUSCLE SPASTICITY
     Dosage: DOSE: UPTO 3 PUFFS PER DAY WHEN REQUIRED
     Route: 060
     Dates: start: 20150819

REACTIONS (4)
  - Facial asymmetry [Unknown]
  - Rash [Recovered/Resolved]
  - Multiple sclerosis relapse [Recovering/Resolving]
  - Hemiparesis [Unknown]

NARRATIVE: CASE EVENT DATE: 20160630
